FAERS Safety Report 12355482 (Version 1)
Quarter: 2016Q2

REPORT INFORMATION
  Report Type: Spontaneous
  Country: None (occurrence: None)
  Receive Date: 20160510
  Receipt Date: 20160510
  Transmission Date: 20160815
  Serious: Yes (Hospitalization, Other)
  Sender: FDA-Public Use
  Company Number: None

PATIENT
  Sex: Female

DRUGS (1)
  1. TIMOLOL 0.5% EYE DROPS, 0.5% [Suspect]
     Active Substance: TIMOLOL
     Route: 047

REACTIONS (2)
  - Visual acuity reduced [None]
  - Eye swelling [None]
